FAERS Safety Report 23756086 (Version 3)
Quarter: 2024Q2

REPORT INFORMATION
  Report Type: Spontaneous
  Country: BE (occurrence: BE)
  Receive Date: 20240418
  Receipt Date: 20240513
  Transmission Date: 20240715
  Serious: Yes (Other)
  Sender: FDA-Public Use
  Company Number: BE-OPELLA-2024OHG009583

PATIENT
  Age: 56 Year
  Sex: Female

DRUGS (14)
  1. MYCOPHENOLIC ACID [Interacting]
     Active Substance: MYCOPHENOLIC ACID
     Indication: Immunosuppressant drug therapy
     Dosage: UNK
     Route: 065
  2. TACROLIMUS [Interacting]
     Active Substance: TACROLIMUS
     Indication: Immunosuppressant drug therapy
     Dosage: 13.7 NG/ML
     Route: 065
  3. TACROLIMUS [Interacting]
     Active Substance: TACROLIMUS
     Indication: Immunosuppressant drug therapy
     Dosage: 13.7 NG/ML
     Route: 065
  4. TACROLIMUS [Interacting]
     Active Substance: TACROLIMUS
     Dosage: 13.7 NG/ML
     Route: 065
  5. FLUCONAZOLE [Interacting]
     Active Substance: FLUCONAZOLE
     Indication: Infection prophylaxis
     Dosage: UNK
     Route: 065
  6. FLUCONAZOLE [Interacting]
     Active Substance: FLUCONAZOLE
     Indication: Infection prophylaxis
     Dosage: UNK
     Route: 065
  7. FLUCONAZOLE [Interacting]
     Active Substance: FLUCONAZOLE
     Dosage: UNK
     Route: 065
  8. PIPERACILLIN SODIUM\TAZOBACTAM SODIUM [Interacting]
     Active Substance: PIPERACILLIN SODIUM\TAZOBACTAM SODIUM
     Indication: Product used for unknown indication
     Dosage: UNK
     Route: 065
  9. PANTOPRAZOLE [Interacting]
     Active Substance: PANTOPRAZOLE
     Indication: Product used for unknown indication
     Dosage: UNK
     Route: 065
  10. PANTOPRAZOLE [Interacting]
     Active Substance: PANTOPRAZOLE
     Dosage: UNK
     Route: 065
  11. PANTOPRAZOLE [Interacting]
     Active Substance: PANTOPRAZOLE
     Dosage: UNK
     Route: 065
  12. PANTOPRAZOLE [Interacting]
     Active Substance: PANTOPRAZOLE
     Dosage: UNK
     Route: 065
  13. ACYCLOVIR [Interacting]
     Active Substance: ACYCLOVIR
     Indication: Infection prophylaxis
     Dosage: UNK
     Route: 065
  14. URSODIOL [Interacting]
     Active Substance: URSODIOL
     Indication: Product used for unknown indication
     Dosage: UNK
     Route: 065

REACTIONS (6)
  - Lactic acidosis [Recovering/Resolving]
  - Blood lactate dehydrogenase increased [Recovering/Resolving]
  - Hepatotoxicity [Recovering/Resolving]
  - Alanine aminotransferase increased [Recovering/Resolving]
  - Drug interaction [Unknown]
  - Aspartate aminotransferase increased [Recovering/Resolving]
